FAERS Safety Report 6827210-8 (Version None)
Quarter: 2010Q3

REPORT INFORMATION
  Report Type: 
  Country: None (occurrence: None)
  Receive Date: 20100709
  Receipt Date: 20100701
  Transmission Date: 20110219
  Serious: Yes (Other)
  Sender: FDA-Public Use
  Company Number: GB-JNJCH-2010000131

PATIENT
  Age: 14 Year
  Sex: Female

DRUGS (9)
  1. CETIRIZINE HYDROCHLORIDE [Suspect]
     Indication: ACARODERMATITIS
     Dosage: TEXT:UNKNOWN
     Route: 065
     Dates: start: 20090917, end: 20091013
  2. HUMAN PAPILLOMAVIRUS VACCINE [Suspect]
     Indication: PROPHYLAXIS
     Dosage: TEXT:1 INJECTION
     Route: 030
     Dates: start: 20091008, end: 20091008
  3. DEPO-PROVERA [Suspect]
     Indication: CONTRACEPTION
     Dosage: TEXT:UNKNOWN
     Route: 065
  4. PERMETHRIN [Suspect]
     Indication: ACARODERMATITIS
     Dosage: TEXT:UNKNOWN
     Route: 061
     Dates: start: 20090917, end: 20090924
  5. MALATHION [Suspect]
     Indication: ACARODERMATITIS
     Dosage: TEXT:UNKNOWN
     Route: 061
     Dates: start: 20090806, end: 20090813
  6. MALATHION [Suspect]
  7. FLUCLOXACILLIN [Suspect]
     Indication: ACARODERMATITIS
     Dosage: TEXT:250 MG QID
     Route: 065
  8. FUCIDIN H [Suspect]
     Indication: ACARODERMATITIS
     Dosage: TEXT:2 DOSAGES PER DAY
     Route: 065
  9. TRIMETHOPRIM [Suspect]
     Indication: URINARY TRACT INFECTION
     Dosage: TEXT:200 MG BID
     Route: 065

REACTIONS (2)
  - DRUG EXPOSURE DURING PREGNANCY [None]
  - PREGNANCY WITH INJECTABLE CONTRACEPTIVE [None]
